FAERS Safety Report 13672191 (Version 1)
Quarter: 2017Q2

REPORT INFORMATION
  Report Type: Spontaneous
  Country: US (occurrence: US)
  Receive Date: 20170620
  Receipt Date: 20170620
  Transmission Date: 20170830
  Serious: Yes (Disabling)
  Sender: FDA-Public Use
  Company Number: None

PATIENT
  Age: 59 Year
  Sex: Female
  Weight: 63 kg

DRUGS (1)
  1. XANAX [Suspect]
     Active Substance: ALPRAZOLAM
     Indication: ANXIETY
     Dosage: ?          QUANTITY:1 TABLET(S);?AS NEEDED ORAL
     Route: 048

REACTIONS (3)
  - Drug tolerance increased [None]
  - Withdrawal syndrome [None]
  - Panic attack [None]

NARRATIVE: CASE EVENT DATE: 20160612
